FAERS Safety Report 23470186 (Version 1)
Quarter: 2024Q1

REPORT INFORMATION
  Report Type: Spontaneous
  Country: US (occurrence: None)
  Receive Date: 20240202
  Receipt Date: 20240202
  Transmission Date: 20240410
  Serious: Yes (Hospitalization)
  Sender: FDA-Public Use
  Company Number: US-ROCHE-3501739

PATIENT
  Age: 32 Year
  Sex: Female

DRUGS (1)
  1. RITUXAN [Suspect]
     Active Substance: RITUXIMAB
     Indication: Product used for unknown indication
     Route: 065

REACTIONS (5)
  - Pyrexia [Unknown]
  - Chills [Unknown]
  - Influenza like illness [Unknown]
  - Pain [Unknown]
  - Nausea [Unknown]
